FAERS Safety Report 4718858-5 (Version None)
Quarter: 2005Q3

REPORT INFORMATION
  Report Type: 
  Country: None (occurrence: None)
  Receive Date: 20050720
  Receipt Date: 20050707
  Transmission Date: 20060218
  Serious: Yes (Hospitalization, Other)
  Sender: FDA-Public Use
  Company Number: 2005099657

PATIENT
  Age: 63 Year
  Sex: Male

DRUGS (1)
  1. FRAGMIN [Suspect]
     Indication: JOINT ARTHROPLASTY
     Dosage: 5000 I.U. (5000 I.U., 1 IN 1 D)

REACTIONS (3)
  - HAEMATOMA [None]
  - HAEMORRHAGE [None]
  - INFECTION [None]
